FAERS Safety Report 17152623 (Version 1)
Quarter: 2019Q4

REPORT INFORMATION
  Report Type: Spontaneous
  Country: US (occurrence: US)
  Receive Date: 20191213
  Receipt Date: 20191213
  Transmission Date: 20200122
  Serious: No
  Sender: FDA-Public Use
  Company Number: US-NOVOPROD-631079

PATIENT
  Age: 64 Year
  Sex: Male

DRUGS (10)
  1. LEVEMIR [Suspect]
     Active Substance: INSULIN DETEMIR
     Dosage: 16 U, UNK
     Route: 058
     Dates: start: 201810, end: 201810
  2. LEVEMIR [Suspect]
     Active Substance: INSULIN DETEMIR
     Indication: TYPE 2 DIABETES MELLITUS
     Dosage: 10 U, UNK
     Route: 058
     Dates: start: 201810, end: 201810
  3. LEVEMIR [Suspect]
     Active Substance: INSULIN DETEMIR
     Dosage: 12 U, UNK
     Route: 058
     Dates: start: 201810, end: 201810
  4. LEVEMIR [Suspect]
     Active Substance: INSULIN DETEMIR
     Dosage: 14 U, UNK
     Route: 058
     Dates: start: 201810, end: 201810
  5. LEVEMIR [Suspect]
     Active Substance: INSULIN DETEMIR
     Dosage: 25 U, UNK
     Route: 058
     Dates: start: 20181029, end: 20181029
  6. METFORMIN [Suspect]
     Active Substance: METFORMIN HYDROCHLORIDE
     Indication: TYPE 2 DIABETES MELLITUS
     Dosage: 1 TAB, BID
     Route: 048
  7. LEVEMIR [Suspect]
     Active Substance: INSULIN DETEMIR
     Dosage: 18 U, UNK
     Route: 058
     Dates: start: 201810, end: 201810
  8. LEVEMIR [Suspect]
     Active Substance: INSULIN DETEMIR
     Dosage: 20 U, UNK
     Route: 058
     Dates: start: 201810, end: 20181028
  9. LEVEMIR [Suspect]
     Active Substance: INSULIN DETEMIR
     Dosage: 20 U, UNK
     Route: 058
     Dates: start: 20181030, end: 20181030
  10. LEVEMIR [Suspect]
     Active Substance: INSULIN DETEMIR
     Dosage: 22 U, UNK
     Route: 058
     Dates: start: 20181030

REACTIONS (2)
  - Dizziness [Recovered/Resolved]
  - Blood glucose increased [Not Recovered/Not Resolved]

NARRATIVE: CASE EVENT DATE: 201810
